FAERS Safety Report 11325818 (Version 3)
Quarter: 2015Q4

REPORT INFORMATION
  Report Type: Spontaneous
  Country: US (occurrence: US)
  Receive Date: 20150731
  Receipt Date: 20151030
  Transmission Date: 20160304
  Serious: Yes (Hospitalization, Other)
  Sender: FDA-Public Use
  Company Number: US-PFIZER INC-2015207981

PATIENT
  Age: 79 Year
  Sex: Female
  Weight: 99 kg

DRUGS (19)
  1. TERFENADINE [Concomitant]
     Active Substance: TERFENADINE
     Dosage: UNK
  2. GLIPIZIDE. [Concomitant]
     Active Substance: GLIPIZIDE
     Dosage: UNK
  3. ACTOS [Concomitant]
     Active Substance: PIOGLITAZONE HYDROCHLORIDE
     Dosage: 45 MG, UNK
  4. GLIPIZIDE. [Concomitant]
     Active Substance: GLIPIZIDE
     Dosage: 10 MG, 2X/DAY
  5. ELIQUIS [Concomitant]
     Active Substance: APIXABAN
     Dosage: 5 MG, 2X/DAY (TAKING IT FOR 1 MONTH)
  6. TORSEMIDE. [Concomitant]
     Active Substance: TORSEMIDE
     Dosage: 20 MG, UNK
  7. POTASSIUM [Concomitant]
     Active Substance: POTASSIUM
     Dosage: 20 MEQ, UNK
  8. METFORMIN [Concomitant]
     Active Substance: METFORMIN HYDROCHLORIDE
     Dosage: UNK
     Dates: start: 20150701
  9. DILTIAZEM [Concomitant]
     Active Substance: DILTIAZEM
     Dosage: 240 MG, 1X/DAY
  10. FUROSEMIDE. [Concomitant]
     Active Substance: FUROSEMIDE
     Dosage: 20 MG, UNK (TWO A DAY)
  11. LEVOTHYROXINE. [Concomitant]
     Active Substance: LEVOTHYROXINE
     Dosage: UNK MG, UNK
  12. SIMVASTATIN. [Concomitant]
     Active Substance: SIMVASTATIN
     Dosage: 20 MG, 1X/DAY
  13. PIOGLITAZONE. [Concomitant]
     Active Substance: PIOGLITAZONE
     Dosage: 45 MG, 1X/DAY
  14. SUTENT [Suspect]
     Active Substance: SUNITINIB MALATE
     Dosage: 50 MG, 1X/DAY
     Dates: start: 20150618, end: 20150712
  15. POTASSIUM [Concomitant]
     Active Substance: POTASSIUM
     Dosage: UNK
  16. SUTENT [Suspect]
     Active Substance: SUNITINIB MALATE
     Indication: RENAL CELL CARCINOMA
     Dosage: 50 MG DAILY, CYCLIC (28 DAYS ON/14 DAYS OFF)
     Dates: start: 20150619, end: 20150713
  17. COZAAR [Concomitant]
     Active Substance: LOSARTAN POTASSIUM
     Dosage: UNK
     Dates: start: 20150715
  18. SIMVASTATIN. [Concomitant]
     Active Substance: SIMVASTATIN
     Dosage: UNK
  19. ATENOL [Concomitant]
     Active Substance: ATENOLOL
     Dosage: 25 MG, UNK (1 AT NIGHT GIVING IT FOR 2 AND HALF MONTHS)

REACTIONS (4)
  - Atrial fibrillation [Unknown]
  - Hypertension [Unknown]
  - Cardiac disorder [Unknown]
  - Malaise [Unknown]

NARRATIVE: CASE EVENT DATE: 20150712
